FAERS Safety Report 9829914 (Version 1)
Quarter: 2014Q1

REPORT INFORMATION
  Report Type: Report from Study
  Country: US (occurrence: US)
  Receive Date: 20140120
  Receipt Date: 20140120
  Transmission Date: 20141002
  Serious: Yes (Death)
  Sender: FDA-Public Use
  Company Number: US-ASTELLAS-2014US000408

PATIENT
  Age: 53 Year
  Sex: Female

DRUGS (3)
  1. ERLOTINIB TABLET [Suspect]
     Indication: BONE CANCER
     Dosage: 150 MG, UNKNOWN/D
     Route: 065
  2. ERLOTINIB TABLET [Suspect]
     Indication: HEPATIC CANCER
  3. ERLOTINIB TABLET [Suspect]
     Indication: LUNG NEOPLASM MALIGNANT

REACTIONS (1)
  - Death [Fatal]
